FAERS Safety Report 14803811 (Version 1)
Quarter: 2018Q2

REPORT INFORMATION
  Report Type: Other
  Country: PL (occurrence: PL)
  Receive Date: 20180425
  Receipt Date: 20180425
  Transmission Date: 20180711
  Serious: Yes (Life-Threatening, Hospitalization, Other)
  Sender: FDA-Public Use
  Company Number: PL-VELOXIS PHARMACEUTICALS-2046430

PATIENT
  Age: 58 Year
  Sex: Female

DRUGS (4)
  1. ENVARSUS XR [Suspect]
     Active Substance: TACROLIMUS
     Indication: RENAL TRANSPLANT
  2. MYCOPHENOLATE MOFETIL. [Suspect]
     Active Substance: MYCOPHENOLATE MOFETIL
  3. MIDAZOLAM HYDROCHLORIDE. [Suspect]
     Active Substance: MIDAZOLAM HYDROCHLORIDE
  4. SIMULECT [Concomitant]
     Active Substance: BASILIXIMAB

REACTIONS (27)
  - Cardiac failure [Unknown]
  - Diabetic macroangiopathy [Unknown]
  - Pneumonitis [Unknown]
  - Coronary artery stenosis [Unknown]
  - Immunosuppressant drug level increased [Unknown]
  - Thrombocytosis [Unknown]
  - Escherichia urinary tract infection [Unknown]
  - Cardiotoxicity [Unknown]
  - Cardiac arrest [Unknown]
  - Electrocardiogram ST segment depression [Unknown]
  - Brain natriuretic peptide increased [Unknown]
  - Cardiogenic shock [Unknown]
  - Upper respiratory tract infection [Unknown]
  - Loss of consciousness [Unknown]
  - Renal impairment [Unknown]
  - Haematoma [Unknown]
  - Arrhythmia [Unknown]
  - Delayed graft function [Unknown]
  - Transplant rejection [Unknown]
  - Pulmonary congestion [Unknown]
  - Acute coronary syndrome [Unknown]
  - Electrolyte imbalance [Unknown]
  - Intermittent claudication [Unknown]
  - Anaemia [Unknown]
  - Extremity necrosis [Unknown]
  - Arteriosclerosis [Unknown]
  - Anuria [Unknown]
